FAERS Safety Report 22249488 (Version 1)
Quarter: 2023Q2

REPORT INFORMATION
  Report Type: Spontaneous
  Country: IT (occurrence: IT)
  Receive Date: 20230425
  Receipt Date: 20230425
  Transmission Date: 20230721
  Serious: Yes (Other)
  Sender: FDA-Public Use
  Company Number: IT-EMA-DD-20230411-225467-135117

PATIENT
  Age: 44 Year
  Sex: Male

DRUGS (10)
  1. SEVELAMER CARBONATE [Suspect]
     Active Substance: SEVELAMER CARBONATE
     Indication: Blood phosphorus abnormal
     Dosage: 2 TABLET FOR EACH MAIN MEAL
     Route: 065
     Dates: end: 2017
  2. SEVELAMER CARBONATE [Suspect]
     Active Substance: SEVELAMER CARBONATE
     Dosage: 800 MG 1 TAB X 2 DAILY INITIALLY, 2 TABS FOR EACH MAIN MEAL THEREAFTER
     Route: 065
     Dates: start: 20151209, end: 2017
  3. SEVELAMER CARBONATE [Suspect]
     Active Substance: SEVELAMER CARBONATE
     Dosage: 800 MG 1 TABLET INITIALLY
     Route: 065
     Dates: start: 2015
  4. SEVELAMER CARBONATE [Suspect]
     Active Substance: SEVELAMER CARBONATE
     Dosage: 800 MILLIGRAM, EVERY OTHER DAY
     Route: 065
     Dates: start: 2015
  5. LANTHANUM CARBONATE [Suspect]
     Active Substance: LANTHANUM CARBONATE
     Indication: Blood phosphorus abnormal
     Dosage: 4 TO 2 TIMES A DAY DEPENDING ON THE PHOSPHOREMIA VALUES
     Route: 065
     Dates: start: 20170926, end: 2018
  6. LANTHANUM CARBONATE [Suspect]
     Active Substance: LANTHANUM CARBONATE
     Dosage: 4 TO 2 TIMES A DAY, AGAIN RESTARTED
     Route: 065
     Dates: start: 201709, end: 2018
  7. CALCITRIOL [Concomitant]
     Active Substance: CALCITRIOL
     Indication: Product used for unknown indication
     Dosage: 1 DOSAGE FORM; 0.25MCG 1 TABLET
     Route: 065
  8. EPOETIN ZETA [Concomitant]
     Active Substance: ERYTHROPOIETIN
     Indication: Product used for unknown indication
     Dosage: UNK
     Route: 065
  9. FERINJECT [Concomitant]
     Active Substance: FERRIC CARBOXYMALTOSE
     Indication: Product used for unknown indication
     Dosage: 50 MG/ML 1 FL OF 10 ML
     Route: 065
  10. RAMIPRIL [Concomitant]
     Active Substance: RAMIPRIL
     Indication: Hypertension
     Dosage: 10MG 1 TABLET
     Route: 065

REACTIONS (2)
  - Abdominal pain [Unknown]
  - Diverticulitis [Recovering/Resolving]
